FAERS Safety Report 4516251-1 (Version None)
Quarter: 2004Q4

REPORT INFORMATION
  Report Type: 
  Country: None (occurrence: None)
  Receive Date: 20041006
  Receipt Date: 20040116
  Transmission Date: 20050328
  Serious: Yes (Other)
  Sender: FDA-Public Use
  Company Number: 04-014-0150

PATIENT
  Age: 35 Year
  Sex: Female
  Weight: 49.8957 kg

DRUGS (10)
  1. METHOTREXATE [Suspect]
     Indication: RHEUMATOID ARTHRITIS
     Dosage: 0.5ML SQ WEEKLY
     Route: 058
     Dates: start: 20031202
  2. METHOTREXATE [Suspect]
     Indication: SYSTEMIC LUPUS ERYTHEMATOSUS
     Dosage: 0.5ML SQ WEEKLY
     Route: 058
     Dates: start: 20031202
  3. SYNTHROID [Concomitant]
  4. NEXIUM [Concomitant]
  5. PREDNISONE [Concomitant]
  6. FOLIC ACID [Concomitant]
  7. FLEXERAL [Concomitant]
  8. PLAQUENIL [Concomitant]
  9. COUMADIN [Concomitant]
  10. NORVASC [Concomitant]

REACTIONS (2)
  - NAUSEA [None]
  - VOMITING [None]
